FAERS Safety Report 14739776 (Version 9)
Quarter: 2021Q3

REPORT INFORMATION
  Report Type: Spontaneous
  Country: US (occurrence: US)
  Receive Date: 20180410
  Receipt Date: 20210826
  Transmission Date: 20211014
  Serious: No
  Sender: FDA-Public Use
  Company Number: US-PFIZER INC-2018141971

PATIENT
  Age: 80 Year
  Sex: Female
  Weight: 59 kg

DRUGS (4)
  1. IBRANCE [Suspect]
     Active Substance: PALBOCICLIB
     Indication: BREAST CANCER FEMALE
     Dosage: 125 MG, CYCLIC (1 CAPSULE DAILY WITH FOOD, 3 WEEKS ON, THEN 1 WEEK OFF)
     Route: 048
     Dates: start: 201312
  2. LATANOPROST. [Concomitant]
     Active Substance: LATANOPROST
     Indication: OPTIC NERVE DISORDER
     Dosage: 2 DROP, 1X/DAY (1 DROP EACH EYE EVERY NIGHT)
  3. IBRANCE [Suspect]
     Active Substance: PALBOCICLIB
     Dosage: 125 MG, CYCLIC (1 CAPSULE DAILY WITH FOOD, 3 WEEKS ON, THEN 1 WEEK OFF)
     Route: 048
  4. LETROZOLE. [Concomitant]
     Active Substance: LETROZOLE
     Indication: BREAST CANCER FEMALE
     Dosage: 2.5 MG, DAILY

REACTIONS (8)
  - Neoplasm progression [Unknown]
  - Alopecia [Unknown]
  - Nail disorder [Unknown]
  - Anxiety [Unknown]
  - Rash [Unknown]
  - Dyspnoea [Unknown]
  - Balance disorder [Unknown]
  - Product dose omission issue [Unknown]
